FAERS Safety Report 4486837-1 (Version None)
Quarter: 2004Q4

REPORT INFORMATION
  Report Type: 
  Country: None (occurrence: None)
  Receive Date: 20041027
  Receipt Date: 20041018
  Transmission Date: 20050328
  Serious: Yes (Other)
  Sender: FDA-Public Use
  Company Number: US-JNJFOC-20041005390

PATIENT
  Sex: Female

DRUGS (2)
  1. DURAGESIC [Suspect]
     Route: 062
  2. NEURONTIN [Concomitant]
     Route: 049

REACTIONS (6)
  - ABDOMINAL DISTENSION [None]
  - ANGIONEUROTIC OEDEMA [None]
  - CHEST PAIN [None]
  - NAUSEA [None]
  - SWOLLEN TONGUE [None]
  - VOMITING [None]
